FAERS Safety Report 23548717 (Version 1)
Quarter: 2024Q1

REPORT INFORMATION
  Report Type: Spontaneous
  Country: US (occurrence: None)
  Receive Date: 20240219
  Receipt Date: 20240219
  Transmission Date: 20240409
  Serious: Yes (Disabling)
  Sender: FDA-Public Use
  Company Number: None

PATIENT
  Age: 62 Year
  Sex: Female
  Weight: 54.45 kg

DRUGS (9)
  1. SERTRALINE [Suspect]
     Active Substance: SERTRALINE HYDROCHLORIDE
     Indication: Anxiety
     Dosage: 1 TABLET AT BEDTIME ORAL
     Route: 048
     Dates: start: 20231222, end: 20240219
  2. SERTRALINE [Suspect]
     Active Substance: SERTRALINE HYDROCHLORIDE
     Indication: Depression
  3. TECFIDERA [Concomitant]
     Active Substance: DIMETHYL FUMARATE
  4. TOPAMAX [Concomitant]
     Active Substance: TOPIRAMATE
  5. CLONIDINE [Concomitant]
     Active Substance: CLONIDINE
  6. AMBIEN [Concomitant]
     Active Substance: ZOLPIDEM TARTRATE
  7. ESOMEPRAZOLE [Concomitant]
     Active Substance: ESOMEPRAZOLE
  8. SUCRALFATE [Concomitant]
     Active Substance: SUCRALFATE
  9. IRON [Concomitant]
     Active Substance: IRON

REACTIONS (7)
  - Oral discomfort [None]
  - Gastrooesophageal reflux disease [None]
  - Pain [None]
  - Back pain [None]
  - Palpitations [None]
  - Weight decreased [None]
  - Anxiety [None]

NARRATIVE: CASE EVENT DATE: 20240101
